FAERS Safety Report 7347456-2 (Version None)
Quarter: 2011Q1

REPORT INFORMATION
  Report Type: 
  Country: None (occurrence: None)
  Receive Date: 20110311
  Receipt Date: 20110302
  Transmission Date: 20110831
  Serious: Yes (Hospitalization)
  Sender: FDA-Public Use
  Company Number: PHHY2011CH17848

PATIENT
  Age: 81 Year
  Sex: Male
  Weight: 63.4 kg

DRUGS (16)
  1. LYRICA [Suspect]
     Indication: POST HERPETIC NEURALGIA
     Dosage: 450 MG DAILY
     Dates: start: 20100601
  2. TEMGESIC [Concomitant]
     Dosage: 0.6 MG DAILY
  3. ACETYLSALICYLIC ACID [Concomitant]
     Dosage: 100 MG DAILY
  4. CALCIMAGON-D3 [Concomitant]
     Dosage: 1000 MG DAILY
  5. MOTILIUM [Concomitant]
  6. VENLAFAXINE [Concomitant]
     Dosage: 75 MG DAILY
  7. KLACID [Interacting]
     Dosage: 1000 MG DAILY
     Dates: start: 20110202, end: 20110207
  8. DAFALGAN [Suspect]
     Dosage: 3 G, QD
  9. TEMESTA [Concomitant]
     Dosage: 0.5 MG DAILY
  10. APROVEL [Concomitant]
     Dosage: 300 MG DAILY
  11. TRILEPTAL [Interacting]
     Indication: POST HERPETIC NEURALGIA
     Dosage: 1050 MG DAILY
     Dates: start: 20100701
  12. FONDAPARINUX SODIUM [Concomitant]
     Dosage: 2.5 MG DAILY
  13. AMOXICILLIN SODIUM W/CLAVULANATE POTASSIUM [Concomitant]
     Dosage: UNK
     Dates: start: 20110202, end: 20110212
  14. NEXIUM [Concomitant]
     Dosage: 40 MG DAILY,
  15. EFFEXOR [Interacting]
     Indication: POST HERPETIC NEURALGIA
     Dosage: 75 MG
     Route: 048
     Dates: start: 20100601
  16. FOSAMAX [Concomitant]
     Dosage: 70 MG WEEKLY

REACTIONS (13)
  - DRUG LEVEL INCREASED [None]
  - NAUSEA [None]
  - VOMITING [None]
  - EXTRAPYRAMIDAL DISORDER [None]
  - BLOOD PRESSURE DECREASED [None]
  - LOBAR PNEUMONIA [None]
  - CONFUSIONAL STATE [None]
  - INSOMNIA [None]
  - HYPERTONIA [None]
  - CHILLS [None]
  - OVERDOSE [None]
  - DRUG INTERACTION [None]
  - DIARRHOEA [None]
